FAERS Safety Report 7374576-9 (Version None)
Quarter: 2011Q1

REPORT INFORMATION
  Report Type: 
  Country: None (occurrence: None)
  Receive Date: 20110325
  Receipt Date: 20100329
  Transmission Date: 20110831
  Serious: No
  Sender: FDA-Public Use
  Company Number: US-MYLANLABS-2010S1005488

PATIENT
  Age: 69 Year
  Sex: Female

DRUGS (1)
  1. FENTANYL-100 [Suspect]
     Indication: PAIN
     Dosage: CHANGED Q72H
     Route: 062
     Dates: start: 20100119

REACTIONS (3)
  - DRUG EFFECT DECREASED [None]
  - BREAKTHROUGH PAIN [None]
  - PAIN IN EXTREMITY [None]
